FAERS Safety Report 16794627 (Version 1)
Quarter: 2019Q3

REPORT INFORMATION
  Report Type: Spontaneous
  Country: US (occurrence: US)
  Receive Date: 20190721
  Receipt Date: 20190721
  Transmission Date: 20191005
  Serious: No
  Sender: FDA-Public Use
  Company Number: None

PATIENT
  Age: 89 Year
  Sex: Female

DRUGS (1)
  1. REPATHA [Suspect]
     Active Substance: EVOLOCUMAB
     Dosage: ?          OTHER FREQUENCY:UNKNOWN;?
     Dates: start: 201803

REACTIONS (3)
  - Wrong technique in device usage process [None]
  - Injury associated with device [None]
  - Visual impairment [None]

NARRATIVE: CASE EVENT DATE: 20190721
